FAERS Safety Report 6110467-9 (Version None)
Quarter: 2009Q1

REPORT INFORMATION
  Report Type: 
  Country: None (occurrence: None)
  Receive Date: 20090310
  Receipt Date: 20090226
  Transmission Date: 20090719
  Serious: Yes (Hospitalization, Other)
  Sender: FDA-Public Use
  Company Number: PHHY2009DE07307

PATIENT
  Age: 74 Year
  Sex: Male
  Weight: 97 kg

DRUGS (6)
  1. METOPROLOL [Suspect]
     Indication: HYPERTENSION
     Dosage: 100 MG, QD
     Route: 048
  2. CORDAREX [Suspect]
     Indication: ATRIAL FIBRILLATION
     Dosage: 200 MG, QD
     Route: 048
     Dates: start: 20080301
  3. CELEBREX [Suspect]
     Indication: OSTEOARTHRITIS
     Dosage: 100 MG, 2 IN 2 DAY
     Route: 048
     Dates: end: 20081120
  4. KINZALMONO [Suspect]
     Indication: HYPERTENSION
     Dosage: 80 MG, QD
     Route: 048
  5. FALITHROM ^FAHLBERG^ [Concomitant]
     Indication: PROPHYLAXIS
     Dosage: 3 MG, QD
     Route: 048
     Dates: start: 20060101
  6. TRIAMPUR [Concomitant]
     Indication: HYPERTENSION
     Dosage: 25 MG, QD
     Route: 048

REACTIONS (11)
  - ASPARTATE AMINOTRANSFERASE INCREASED [None]
  - BLOOD PRESSURE INCREASED [None]
  - BRADYCARDIA [None]
  - CARPAL TUNNEL SYNDROME [None]
  - DIZZINESS [None]
  - GAMMA-GLUTAMYLTRANSFERASE INCREASED [None]
  - INTERNATIONAL NORMALISED RATIO INCREASED [None]
  - MYASTHENIA GRAVIS [None]
  - NAUSEA [None]
  - PARAESTHESIA [None]
  - VOMITING [None]
